FAERS Safety Report 10403231 (Version 1)
Quarter: 2014Q3

REPORT INFORMATION
  Report Type: Spontaneous
  Country: US (occurrence: None)
  Receive Date: 20140820
  Receipt Date: 20140820
  Transmission Date: 20150326
  Serious: Yes (Hospitalization)
  Sender: FDA-Public Use
  Company Number: None

PATIENT
  Age: 66 Year
  Sex: Female
  Weight: 49.9 kg

DRUGS (6)
  1. AZELAGTINE NASAL SPRAY [Concomitant]
  2. PROLIA [Suspect]
     Active Substance: DENOSUMAB
     Indication: OSTEOPOROSIS
     Dosage: 1 INJECTIO EVERY 6 MONTHS INJECTION
     Route: 030
     Dates: start: 20130913, end: 20140515
  3. V - D3 [Concomitant]
  4. ZYTEC GERM BUSTER HAND SANITIZER [Concomitant]
     Active Substance: ALCOHOL
  5. VALIUM [Concomitant]
     Active Substance: DIAZEPAM
  6. FLUTICASONE NASAL SPRAY [Concomitant]
     Active Substance: FLUTICASONE\FLUTICASONE PROPIONATE

REACTIONS (3)
  - Epistaxis [None]
  - Fatigue [None]
  - Personality change [None]
